FAERS Safety Report 23493396 (Version 1)
Quarter: 2024Q1

REPORT INFORMATION
  Report Type: Spontaneous
  Country: CA (occurrence: CA)
  Receive Date: 20240207
  Receipt Date: 20240207
  Transmission Date: 20240410
  Serious: Yes (Other)
  Sender: FDA-Public Use
  Company Number: CA-BAUSCH-BL-2024-001546

PATIENT
  Age: 52 Year
  Sex: Male
  Weight: 118 kg

DRUGS (2)
  1. EFUDEX [Suspect]
     Active Substance: FLUOROURACIL
     Indication: Precancerous condition
     Dosage: 14 DAYS
     Route: 061
  2. EFUDEX [Suspect]
     Active Substance: FLUOROURACIL
     Route: 065

REACTIONS (2)
  - Precancerous condition [Unknown]
  - Condition aggravated [Unknown]
